FAERS Safety Report 12714593 (Version 4)
Quarter: 2016Q3

REPORT INFORMATION
  Report Type: Spontaneous
  Country: JP (occurrence: JP)
  Receive Date: 20160905
  Receipt Date: 20160927
  Transmission Date: 20161109
  Serious: Yes (Hospitalization)
  Sender: FDA-Public Use
  Company Number: JP-ROCHE-1825559

PATIENT
  Age: 46 Year
  Sex: Male
  Weight: 55 kg

DRUGS (14)
  1. XELODA [Suspect]
     Active Substance: CAPECITABINE
     Dosage: DOSAGE IS UNCERTAIN.
     Route: 048
     Dates: start: 20160825, end: 20160901
  2. DECADRON [Concomitant]
     Active Substance: DEXAMETHASONE
     Indication: PROPHYLAXIS
     Route: 048
     Dates: start: 20160825, end: 20160828
  3. XELODA [Suspect]
     Active Substance: CAPECITABINE
     Indication: GASTRIC CANCER
     Dosage: DOSAGE IS UNCERTAIN.
     Route: 048
     Dates: start: 20160808, end: 20160817
  4. CISPLATIN. [Concomitant]
     Active Substance: CISPLATIN
     Indication: GASTRIC CANCER
     Dosage: SINGLE DOSE ADMINISTRATION
     Route: 041
     Dates: start: 20160825, end: 20160825
  5. EMEND [Concomitant]
     Active Substance: APREPITANT
     Indication: PROPHYLAXIS
     Route: 048
     Dates: start: 20160804, end: 20160806
  6. ARTIST [Concomitant]
     Active Substance: CARVEDILOL
     Indication: CONGESTIVE CARDIOMYOPATHY
     Dosage: THE FRACTIONATION DOSE FREQUENCY IS UNCERTAIN.
     Route: 065
  7. CISPLATIN. [Concomitant]
     Active Substance: CISPLATIN
     Indication: GASTRIC CANCER
     Dosage: SINGLE DOSE ADMINISTRATION
     Route: 041
     Dates: start: 20160804, end: 20160804
  8. DECADRON [Concomitant]
     Active Substance: DEXAMETHASONE
     Indication: PROPHYLAXIS
     Route: 048
     Dates: start: 20160804, end: 20160807
  9. OXALIPLATIN. [Concomitant]
     Active Substance: OXALIPLATIN
     Indication: GASTRIC CANCER
     Dosage: DOSAGE IS UNCERTAIN.
     Route: 041
  10. ALLEGRA [Concomitant]
     Active Substance: FEXOFENADINE HYDROCHLORIDE
     Dosage: DOSAGE IS UNCERTAIN.
     Route: 065
  11. EMEND [Concomitant]
     Active Substance: APREPITANT
     Indication: PROPHYLAXIS
     Route: 048
     Dates: start: 20160825, end: 20160827
  12. PYDOXAL [Concomitant]
     Active Substance: PYRIDOXAL
     Indication: PROPHYLAXIS
     Dosage: THE FRACTIONATION DOSE FREQUENCY IS UNCERTAIN.
     Route: 065
     Dates: start: 20160804
  13. HERCEPTIN [Suspect]
     Active Substance: TRASTUZUMAB
     Indication: GASTRIC CANCER
     Dosage: DOSAGE IS UNCERTAIN. ?TWICE
     Route: 041
     Dates: start: 20160808, end: 20160808
  14. HERCEPTIN [Suspect]
     Active Substance: TRASTUZUMAB
     Dosage: DOSAGE IS UNCERTAIN. ?TWICE
     Route: 041
     Dates: start: 20160825, end: 20160825

REACTIONS (1)
  - Acute myocardial infarction [Recovered/Resolved]

NARRATIVE: CASE EVENT DATE: 20160901
